FAERS Safety Report 10927744 (Version 1)
Quarter: 2015Q1

REPORT INFORMATION
  Report Type: Spontaneous
  Country: GB (occurrence: GB)
  Receive Date: 20150319
  Receipt Date: 20150319
  Transmission Date: 20150721
  Serious: Yes (Disabling)
  Sender: FDA-Public Use
  Company Number: PHHY2015GB029208

PATIENT
  Age: 22 Year
  Sex: Female
  Weight: 58 kg

DRUGS (1)
  1. METRONIDAZOLE. [Suspect]
     Active Substance: METRONIDAZOLE
     Indication: TOOTH INFECTION
     Dosage: 200 MG, TID
     Route: 048
     Dates: start: 20150226, end: 20150301

REACTIONS (3)
  - Eye pain [Unknown]
  - Headache [Unknown]
  - Breast pain [Unknown]

NARRATIVE: CASE EVENT DATE: 20150226
